FAERS Safety Report 17075200 (Version 1)
Quarter: 2019Q4

REPORT INFORMATION
  Report Type: Spontaneous
  Country: US (occurrence: US)
  Receive Date: 20191125
  Receipt Date: 20191125
  Transmission Date: 20200122
  Serious: Yes (Other)
  Sender: FDA-Public Use
  Company Number: None

PATIENT
  Age: 4 Year
  Sex: Male
  Weight: 16.65 kg

DRUGS (1)
  1. POLYVIFLOR 0.25, LIQUID ZYLERA [Suspect]
     Active Substance: FERROUS SULFATE\SODIUM FLUORIDE\VITAMINS
     Indication: VITAMIN SUPPLEMENTATION
     Route: 048

REACTIONS (2)
  - Urticaria [None]
  - Cyanosis [None]

NARRATIVE: CASE EVENT DATE: 20181203
